FAERS Safety Report 7105542-6 (Version None)
Quarter: 2010Q4

REPORT INFORMATION
  Report Type: 
  Country: None (occurrence: None)
  Receive Date: 20101110
  Receipt Date: 20101102
  Transmission Date: 20110411
  Serious: Yes (Life-Threatening, Hospitalization)
  Sender: FDA-Public Use
  Company Number: 2010SP001894

PATIENT
  Age: 45 Year
  Sex: Female
  Weight: 79.1 kg

DRUGS (17)
  1. CICLESONIDE HFA (160 UG) [Suspect]
     Indication: RHINITIS ALLERGIC
     Dosage: 160 UG; QD; NASAL
     Route: 045
     Dates: start: 20100414, end: 20100629
  2. ZOLOFT [Concomitant]
  3. CLONAZEPAM [Concomitant]
  4. NAPROXEN [Concomitant]
  5. OMEPRAZOLE [Concomitant]
  6. IBUPROFEN [Concomitant]
  7. AZITHROMYCIN [Concomitant]
  8. PREDNISONE [Concomitant]
  9. BENZONATATE [Concomitant]
  10. METFORMIN [Concomitant]
  11. MUCINEX [Concomitant]
  12. FLUCONAZOLE [Concomitant]
  13. PROMETHAZINE [Concomitant]
  14. AMOXICILLIN [Concomitant]
  15. FLUCONAZOLE [Concomitant]
  16. ALEVE [Concomitant]
  17. TYLENOL (CAPLET) [Concomitant]

REACTIONS (5)
  - ACUTE RESPIRATORY DISTRESS SYNDROME [None]
  - CARDIAC FAILURE CONGESTIVE [None]
  - PNEUMONIA [None]
  - PULMONARY OEDEMA [None]
  - RESPIRATORY FAILURE [None]
